FAERS Safety Report 24254132 (Version 1)
Quarter: 2024Q3

REPORT INFORMATION
  Report Type: Spontaneous
  Country: US (occurrence: US)
  Receive Date: 20240827
  Receipt Date: 20240827
  Transmission Date: 20241017
  Serious: Yes (Other)
  Sender: BRISTOL MYERS SQUIBB
  Company Number: US-BRISTOL-MYERS SQUIBB COMPANY-2024-134085

PATIENT
  Age: 51 Year
  Sex: Female
  Weight: 64.41 kg

DRUGS (6)
  1. AUGTYRO [Suspect]
     Active Substance: REPOTRECTINIB
     Indication: Non-small cell lung cancer
     Route: 048
     Dates: start: 20240802
  2. AUGTYRO [Suspect]
     Active Substance: REPOTRECTINIB
     Dates: start: 20240814
  3. VITAMIN D NOS [Concomitant]
     Active Substance: CHOLECALCIFEROL\ERGOCALCIFEROL
  4. VITAMINS [Concomitant]
     Active Substance: VITAMINS
  5. GABAPENTIN [Concomitant]
     Active Substance: GABAPENTIN
     Dosage: TAKING IT AT NIGHT
  6. TRAMADOL [Concomitant]
     Active Substance: TRAMADOL\TRAMADOL HYDROCHLORIDE
     Indication: Neoplasm

REACTIONS (9)
  - Neuropathy peripheral [Unknown]
  - Taste disorder [Not Recovered/Not Resolved]
  - Eating disorder [Unknown]
  - Nausea [Unknown]
  - Feeling of body temperature change [Unknown]
  - Dizziness [Unknown]
  - Headache [Unknown]
  - Pharyngeal swelling [Unknown]
  - Urinary hesitation [Unknown]
